FAERS Safety Report 6793081-1 (Version None)
Quarter: 2010Q2

REPORT INFORMATION
  Report Type: 
  Country: None (occurrence: None)
  Receive Date: 20100624
  Receipt Date: 20081126
  Transmission Date: 20101027
  Serious: No
  Sender: FDA-Public Use
  Company Number: US-PFIZER INC-2008100709

PATIENT
  Sex: Male
  Weight: 86.4 kg

DRUGS (5)
  1. SUTENT [Suspect]
     Indication: RENAL CELL CARCINOMA
     Dates: start: 20080501
  2. ANTIHYPERTENSIVES [Concomitant]
  3. CHOLESTEROL- AND TRIGLYCERIDE REDUCERS [Concomitant]
  4. HERBAL NOS/MINERALS NOS [Concomitant]
  5. OTHER HYPNOTICS AND SEDATIVES [Concomitant]

REACTIONS (6)
  - CHEST PAIN [None]
  - DISCOMFORT [None]
  - DYSPEPSIA [None]
  - GASTROINTESTINAL DISORDER [None]
  - SWELLING [None]
  - SWELLING FACE [None]
